FAERS Safety Report 6818206-0 (Version None)
Quarter: 2010Q3

REPORT INFORMATION
  Report Type: 
  Country: None (occurrence: None)
  Receive Date: 20100706
  Receipt Date: 20070330
  Transmission Date: 20110219
  Serious: No
  Sender: FDA-Public Use
  Company Number: US-PFIZER INC-2007025791

PATIENT

DRUGS (1)
  1. ZITHROMAX [Suspect]

REACTIONS (2)
  - HEARING IMPAIRED [None]
  - VESTIBULAR FUNCTION TEST ABNORMAL [None]
